FAERS Safety Report 9814561 (Version 4)
Quarter: 2016Q4

REPORT INFORMATION
  Report Type: Spontaneous
  Country: US (occurrence: US)
  Receive Date: 20140113
  Receipt Date: 20161005
  Transmission Date: 20170207
  Serious: Yes (Life-Threatening, Hospitalization, Disabling, Other)
  Sender: FDA-Public Use
  Company Number: US-ABBVIE-14P-163-1187767-00

PATIENT
  Age: 63 Year
  Sex: Female

DRUGS (23)
  1. LAMICTAL XR [Interacting]
     Active Substance: LAMOTRIGINE
     Dosage: XR
     Route: 048
  2. LAMICTAL XR [Interacting]
     Active Substance: LAMOTRIGINE
     Dosage: PROLONGED-RELEASE
     Route: 048
  3. VITAMIN B [Concomitant]
     Active Substance: VITAMIN B
     Indication: PRODUCT USED FOR UNKNOWN INDICATION
  4. DIVALPROEX SODIUM. [Interacting]
     Active Substance: DIVALPROEX SODIUM
     Indication: EPILEPSY
  5. LAMICTAL XR [Interacting]
     Active Substance: LAMOTRIGINE
     Dosage: PROLONGED RELEASE
     Route: 048
     Dates: start: 2012
  6. CIPROFLOXACIN HCL [Suspect]
     Active Substance: CIPROFLOXACIN HYDROCHLORIDE
     Indication: URINARY TRACT INFECTION
     Route: 065
  7. CEREFOLIN WITH NAC [Concomitant]
     Indication: PRODUCT USED FOR UNKNOWN INDICATION
     Dates: end: 2013
  8. LAMICTAL XR [Interacting]
     Active Substance: LAMOTRIGINE
     Route: 048
     Dates: start: 201312
  9. VITAMIN D [Concomitant]
     Active Substance: CHOLECALCIFEROL
     Indication: PRODUCT USED FOR UNKNOWN INDICATION
     Dates: end: 2013
  10. ZONISAMIDE. [Concomitant]
     Active Substance: ZONISAMIDE
     Indication: PRODUCT USED FOR UNKNOWN INDICATION
     Dates: end: 2013
  11. DIVALPROEX SODIUM. [Suspect]
     Active Substance: DIVALPROEX SODIUM
     Indication: SEIZURE
     Dosage: INCREASED TO 500 MG DAILY
     Route: 065
     Dates: start: 2004, end: 2013
  12. CALCIUM SALT [Concomitant]
     Indication: PRODUCT USED FOR UNKNOWN INDICATION
     Dates: end: 2013
  13. TRAZODONE [Concomitant]
     Active Substance: TRAZODONE HYDROCHLORIDE
     Indication: PRODUCT USED FOR UNKNOWN INDICATION
     Dates: end: 2013
  14. LAMICTAL XR [Interacting]
     Active Substance: LAMOTRIGINE
     Indication: PARTIAL SEIZURES
     Dosage: XR
     Route: 048
     Dates: start: 2001
  15. ZONEGRAN [Interacting]
     Active Substance: ZONISAMIDE
     Indication: PRODUCT USED FOR UNKNOWN INDICATION
     Dosage: UP TO 400 MG DAILY, CURRENT DOSE 300 MG
     Route: 065
     Dates: start: 201312
  16. ASPIRIN. [Suspect]
     Active Substance: ASPIRIN
     Indication: PRODUCT USED FOR UNKNOWN INDICATION
     Route: 065
     Dates: end: 2013
  17. BENADRYL [Suspect]
     Active Substance: DIPHENHYDRAMINE HYDROCHLORIDE
     Indication: PRODUCT USED FOR UNKNOWN INDICATION
     Route: 065
     Dates: start: 201607
  18. BACTRIM [Suspect]
     Active Substance: SULFAMETHOXAZOLE\TRIMETHOPRIM
     Indication: URINARY TRACT INFECTION
     Route: 065
  19. LYRICA [Suspect]
     Active Substance: PREGABALIN
     Indication: PRODUCT USED FOR UNKNOWN INDICATION
     Route: 065
     Dates: end: 2013
  20. CELEXA [Concomitant]
     Active Substance: CITALOPRAM HYDROBROMIDE
     Indication: PRODUCT USED FOR UNKNOWN INDICATION
     Dates: end: 2013
  21. CELEPHONRING [Concomitant]
     Indication: PRODUCT USED FOR UNKNOWN INDICATION
     Route: 065
     Dates: end: 2013
  22. LAMICTAL XR [Interacting]
     Active Substance: LAMOTRIGINE
     Dosage: XR
     Route: 048
     Dates: start: 2002
  23. LAMOTRIGINE. [Suspect]
     Active Substance: LAMOTRIGINE
     Indication: EPILEPSY
     Route: 065

REACTIONS (41)
  - Pruritus [Not Recovered/Not Resolved]
  - Hospitalisation [Unknown]
  - Drug ineffective [Recovered/Resolved]
  - Sinusitis [Recovered/Resolved]
  - Nausea [Recovered/Resolved]
  - Seizure [Recovered/Resolved]
  - Rash [Not Recovered/Not Resolved]
  - Anticonvulsant drug level decreased [Recovered/Resolved]
  - Gastrointestinal disorder [Unknown]
  - Head injury [Recovered/Resolved]
  - Visual impairment [Recovered/Resolved]
  - Feeling abnormal [Recovered/Resolved]
  - Joint swelling [Recovered/Resolved]
  - Suicide attempt [Unknown]
  - Diarrhoea [Not Recovered/Not Resolved]
  - Scratch [Unknown]
  - Blood glucose decreased [Recovered/Resolved]
  - Arthralgia [Recovered/Resolved]
  - Arthralgia [Recovered/Resolved]
  - Drug hypersensitivity [Unknown]
  - Overdose [Recovered/Resolved]
  - Dizziness [Recovered/Resolved]
  - Mental disorder [Unknown]
  - Anticonvulsant drug level increased [Unknown]
  - Fall [Recovered/Resolved]
  - Drug interaction [Unknown]
  - Overdose [Recovered/Resolved]
  - Tremor [Recovered/Resolved]
  - Fatigue [Recovered/Resolved]
  - Drug level fluctuating [Unknown]
  - Adverse drug reaction [Unknown]
  - Urticaria [Recovered/Resolved]
  - Apparent death [Recovered/Resolved]
  - Urticaria [Unknown]
  - Loss of consciousness [Recovered/Resolved]
  - Muscular weakness [Recovered/Resolved]
  - Seizure [Unknown]
  - Vomiting [Recovered/Resolved]
  - Paralysis [Recovered/Resolved]
  - Joint swelling [Recovered/Resolved]
  - Drug hypersensitivity [Unknown]

NARRATIVE: CASE EVENT DATE: 2012
